FAERS Safety Report 7445216-5 (Version None)
Quarter: 2011Q2

REPORT INFORMATION
  Report Type: 
  Country: None (occurrence: None)
  Receive Date: 20110429
  Receipt Date: 20110420
  Transmission Date: 20111010
  Serious: Yes (Death)
  Sender: FDA-Public Use
  Company Number: JP-BAXTER-2011BH012619

PATIENT
  Sex: Male

DRUGS (2)
  1. ADVATE [Suspect]
     Indication: FACTOR VIII DEFICIENCY
     Route: 042
  2. ADVATE [Suspect]
     Indication: FACTOR VIII DEFICIENCY
     Route: 042

REACTIONS (1)
  - AIDS ENCEPHALOPATHY [None]
